FAERS Safety Report 7982854-5 (Version None)
Quarter: 2011Q4

REPORT INFORMATION
  Report Type: 
  Country: None (occurrence: None)
  Receive Date: 20111215
  Receipt Date: 20111207
  Transmission Date: 20120403
  Serious: Yes (Hospitalization)
  Sender: FDA-Public Use
  Company Number: US-SHIONOGI, INC-2011000271

PATIENT

DRUGS (5)
  1. CLONIDINE HCL [Concomitant]
     Dosage: UNK
     Dates: start: 20110124, end: 20111014
  2. KAPVAY [Suspect]
     Dosage: 0.1 MG IN THE AM AND 0.2 MG AT BEDTIME
     Dates: start: 20111014, end: 20111201
  3. RISPERDAL [Concomitant]
     Indication: AFFECTIVE DISORDER
     Dosage: UNK
     Dates: start: 20110331
  4. LAMICTAL [Concomitant]
     Indication: AFFECTIVE DISORDER
     Dosage: UNK
     Dates: start: 20110902
  5. KAPVAY [Suspect]
     Dosage: 0.1 MG IN THE AM AND 0.1 MG AT BEDTIME
     Dates: start: 20111201

REACTIONS (2)
  - CONVULSION [None]
  - SEDATION [None]
